FAERS Safety Report 21364417 (Version 1)
Quarter: 2022Q3

REPORT INFORMATION
  Report Type: Spontaneous
  Country: US (occurrence: US)
  Receive Date: 20220922
  Receipt Date: 20220922
  Transmission Date: 20221027
  Serious: Yes (Life-Threatening, Hospitalization)
  Sender: FDA-Public Use
  Company Number: US-STRIDES ARCOLAB LIMITED-2022SP012039

PATIENT
  Age: 3 Month
  Sex: Male

DRUGS (16)
  1. HYDROCODONE BITARTRATE AND ACETAMINOPHEN [Suspect]
     Active Substance: ACETAMINOPHEN\HYDROCODONE BITARTRATE
     Indication: Analgesic therapy
     Dosage: 0.2 MILLIGRAM/KILOGRAM
     Route: 048
  2. FENTANYL [Suspect]
     Active Substance: FENTANYL
     Indication: Analgesic therapy
     Dosage: 25 MICROGRAM (7.2 MG/KG), INTRAVENOUS INFUSION
     Route: 050
  3. FENTANYL [Suspect]
     Active Substance: FENTANYL
     Dosage: UNK, INFUSION 0.5-1 MICROG/KG/HR, INTRAVENOUS INFUSION
     Route: 050
  4. FENTANYL [Suspect]
     Active Substance: FENTANYL
     Dosage: 5 MICROGRAM
     Route: 065
  5. FENTANYL [Suspect]
     Active Substance: FENTANYL
     Dosage: UNK, REQUIRED REPEATED BOLUSES AND ESCALATING INFUSION RATES
     Route: 040
  6. FENTANYL [Suspect]
     Active Substance: FENTANYL
     Dosage: 10 MICROGRAM
     Route: 042
  7. FENTANYL [Suspect]
     Active Substance: FENTANYL
     Dosage: 20 MICROGRAM
     Route: 065
  8. DEXMEDETOMIDINE [Suspect]
     Active Substance: DEXMEDETOMIDINE
     Indication: Anaesthesia
     Dosage: UNK, REQUIRED REPEATED BOLUSES AND ESCALATING INFUSION RATES
     Route: 040
  9. DEXMEDETOMIDINE [Suspect]
     Active Substance: DEXMEDETOMIDINE
     Dosage: 10 MICROGRAM
     Route: 042
  10. DEXMEDETOMIDINE [Suspect]
     Active Substance: DEXMEDETOMIDINE
     Dosage: 10 MICROGRAM, DOSE OF (0.4 MCG TO 10 MCG) INTRAOPERATIVELY; REQUIRED ESCALATING INFUSION RATES, INTR
     Route: 050
  11. MORPHINE [Suspect]
     Active Substance: MORPHINE
     Indication: Analgesic therapy
     Dosage: 0.9 MILLIGRAM, IN DIVIDED DOSES
     Route: 042
  12. MORPHINE [Suspect]
     Active Substance: MORPHINE
     Dosage: 0.05 MILLIGRAM/KILOGRAM, PRN, RECEIVED 3 DOSES
     Route: 042
  13. ROPIVACAINE [Concomitant]
     Active Substance: ROPIVACAINE
     Indication: Product used for unknown indication
     Dosage: UNK
     Route: 065
  14. ROPIVACAINE [Concomitant]
     Active Substance: ROPIVACAINE
     Dosage: UNK
     Route: 058
  15. SEVOFLURANE [Concomitant]
     Active Substance: SEVOFLURANE
     Indication: Induction and maintenance of anaesthesia
     Dosage: UNK,RECEIVED DOSE (0.7 TO 2)
     Route: 065
  16. SUGAMMADEX [Concomitant]
     Active Substance: SUGAMMADEX
     Indication: Neuromuscular blockade reversal
     Dosage: UNK
     Route: 065

REACTIONS (2)
  - Hyperaesthesia [Unknown]
  - Drug ineffective [Unknown]
